FAERS Safety Report 6793851-X (Version None)
Quarter: 2010Q2

REPORT INFORMATION
  Report Type: 
  Country: None (occurrence: None)
  Receive Date: 20100624
  Receipt Date: 20090518
  Transmission Date: 20101027
  Serious: No
  Sender: FDA-Public Use
  Company Number: US-PFIZER INC-2009167177

PATIENT

DRUGS (1)
  1. GEODON [Suspect]
     Route: 048

REACTIONS (1)
  - SOMNOLENCE [None]
